FAERS Safety Report 4548603-8 (Version None)
Quarter: 2004Q4

REPORT INFORMATION
  Report Type: 
  Country: None (occurrence: None)
  Receive Date: 20041227
  Receipt Date: 20040917
  Transmission Date: 20050328
  Serious: No
  Sender: FDA-Public Use
  Company Number: 04P-163-0273587-00

PATIENT
  Age: 66 Year
  Sex: Female
  Weight: 73.9363 kg

DRUGS (8)
  1. HUMIRA [Suspect]
     Indication: RHEUMATOID ARTHRITIS
     Dosage: 40 MG, 1 IN 2 WK, SUBCUTANEOUS
     Route: 058
     Dates: start: 20040908
  2. METHOTREXATE SODIUM [Concomitant]
  3. SULFASALAZINE [Concomitant]
  4. LANSOPRAZOLE [Concomitant]
  5. CELECOXIB [Concomitant]
  6. MULTIVITAMIN [Concomitant]
  7. FOLIC ACID [Concomitant]
  8. GLUCOSAMINE [Concomitant]

REACTIONS (6)
  - CHEST DISCOMFORT [None]
  - CYSTITIS [None]
  - HYPERHIDROSIS [None]
  - MOOD SWINGS [None]
  - PHARYNGOLARYNGEAL PAIN [None]
  - PYREXIA [None]
